FAERS Safety Report 6814370-8 (Version None)
Quarter: 2010Q3

REPORT INFORMATION
  Report Type: 
  Country: None (occurrence: None)
  Receive Date: 20100702
  Receipt Date: 20100623
  Transmission Date: 20110219
  Serious: Yes (Life-Threatening, Other)
  Sender: FDA-Public Use
  Company Number: DE-ELI_LILLY_AND_COMPANY-DE201006006331

PATIENT
  Sex: Female
  Weight: 85.5 kg

DRUGS (4)
  1. PEMETREXED [Suspect]
     Indication: NON-SMALL CELL LUNG CANCER
     Dosage: 150 MG, UNKNOWN
     Route: 065
     Dates: start: 20100519
  2. CISPLATIN [Suspect]
     Indication: NON-SMALL CELL LUNG CANCER
     Dosage: 1000 MG, UNKNOWN
     Route: 065
     Dates: start: 20100519
  3. BEVACIZUMAB [Suspect]
     Indication: NON-SMALL CELL LUNG CANCER
     Dosage: 705 MG, UNKNOWN
     Route: 065
     Dates: start: 20100519
  4. MORPHINE [Concomitant]
     Indication: SEDATION
     Dates: start: 20100616, end: 20100616

REACTIONS (1)
  - DIASTOLIC DYSFUNCTION [None]
